FAERS Safety Report 17638236 (Version 1)
Quarter: 2020Q2

REPORT INFORMATION
  Report Type: Spontaneous
  Country: US (occurrence: US)
  Receive Date: 20200407
  Receipt Date: 20200407
  Transmission Date: 20200713
  Serious: No
  Sender: FDA-Public Use
  Company Number: None

PATIENT
  Age: 49 Year
  Sex: Female
  Weight: 60.75 kg

DRUGS (11)
  1. XGEVA 120MG/1.7ML, SQ [Concomitant]
  2. CALCIUM + D3, 600MG-200MG, ORAL [Concomitant]
  3. VERZENIO 150MG, ORAL BID [Concomitant]
     Dates: start: 20190501, end: 20190515
  4. IBUPROFEN 200MG, ORAL [Concomitant]
  5. PREDNISONE. [Concomitant]
     Active Substance: PREDNISONE
  6. IBRANCE 125 MG, ORAL [Concomitant]
     Dates: start: 20190515, end: 20190920
  7. IBRANCE [Suspect]
     Active Substance: PALBOCICLIB
     Indication: BREAST CANCER
     Route: 048
     Dates: start: 20200131
  8. FASLODEX 250 MG/5ML, IM [Concomitant]
  9. AMLODIPINE 5 MG, ORAL [Concomitant]
  10. ZITHROMAX [Concomitant]
     Active Substance: AZITHROMYCIN DIHYDRATE
  11. ZOLADEX 10.8MG, SQ [Concomitant]

REACTIONS (3)
  - Headache [None]
  - Hot flush [None]
  - Fatigue [None]

NARRATIVE: CASE EVENT DATE: 20200407
